FAERS Safety Report 15577508 (Version 1)
Quarter: 2018Q4

REPORT INFORMATION
  Report Type: Spontaneous
  Country: JP (occurrence: JP)
  Receive Date: 20181102
  Receipt Date: 20181102
  Transmission Date: 20190205
  Serious: Yes (Hospitalization)
  Sender: FDA-Public Use
  Company Number: JP-TEVA-2018-JP-005895J

PATIENT
  Sex: Male

DRUGS (2)
  1. CONSTAN 0.4MG TABLETS [Suspect]
     Active Substance: ALPRAZOLAM
     Indication: PRODUCT USED FOR UNKNOWN INDICATION
     Route: 048
     Dates: start: 1998
  2. CONSTAN 0.4MG TABLETS [Suspect]
     Active Substance: ALPRAZOLAM
     Route: 048

REACTIONS (4)
  - Limb discomfort [Not Recovered/Not Resolved]
  - Insomnia [Unknown]
  - Nocturia [Unknown]
  - Bladder neoplasm [Unknown]
